FAERS Safety Report 5698614-4 (Version None)
Quarter: 2008Q2

REPORT INFORMATION
  Report Type: 
  Country: None (occurrence: None)
  Receive Date: 20080408
  Receipt Date: 20061113
  Transmission Date: 20081010
  Serious: No
  Sender: FDA-Public Use
  Company Number: US-BAYER-US-2006-035496

PATIENT
  Age: 45 Year
  Sex: Female
  Weight: 118 kg

DRUGS (1)
  1. CLIMARA [Suspect]
     Indication: MENOPAUSAL SYMPTOMS
     Route: 062
     Dates: start: 20051101

REACTIONS (2)
  - APPLICATION SITE ODOUR [None]
  - APPLICATION SITE RASH [None]
